FAERS Safety Report 10192212 (Version 3)
Quarter: 2015Q1

REPORT INFORMATION
  Report Type: Spontaneous
  Country: US (occurrence: US)
  Receive Date: 20140523
  Receipt Date: 20150217
  Transmission Date: 20150720
  Serious: No
  Sender: FDA-Public Use
  Company Number: US-AMARIN PHARMA, INC.-2014AMR000029

PATIENT
  Sex: Male
  Weight: 113.5 kg

DRUGS (4)
  1. VASCEPA [Suspect]
     Active Substance: ETHYL ICOSAPENTATE
     Indication: PROPHYLAXIS
  2. MEDICINE FOR TYPE II DIABETES [Concomitant]
     Indication: DIABETES MELLITUS
     Route: 065
  3. VASCEPA [Suspect]
     Active Substance: ETHYL ICOSAPENTATE
     Indication: BLOOD TRIGLYCERIDES
     Route: 065
     Dates: start: 2013
  4. ADVIL [Concomitant]
     Active Substance: IBUPROFEN
     Indication: BACK PAIN
     Route: 065

REACTIONS (4)
  - Product physical issue [Unknown]
  - Off label use [Unknown]
  - No adverse event [Unknown]
  - Product odour abnormal [Unknown]
